FAERS Safety Report 10234779 (Version 1)
Quarter: 2014Q2

REPORT INFORMATION
  Report Type: Spontaneous
  Country: US (occurrence: None)
  Receive Date: 20140611
  Receipt Date: 20140611
  Transmission Date: 20141212
  Serious: No
  Sender: FDA-Public Use
  Company Number: None

PATIENT
  Age: 30 Year
  Sex: Female
  Weight: 76.66 kg

DRUGS (3)
  1. FETZIMA [Suspect]
     Indication: DEPRESSION
     Dosage: ONE CAPSULE EVERY MORNING..
     Route: 048
     Dates: start: 20140205, end: 20140610
  2. ABILIFY [Concomitant]
  3. XANAX [Concomitant]

REACTIONS (2)
  - Palpitations [None]
  - Palpitations [None]
